FAERS Safety Report 17871125 (Version 1)
Quarter: 2020Q2

REPORT INFORMATION
  Report Type: Spontaneous
  Country: GB (occurrence: GB)
  Receive Date: 20200608
  Receipt Date: 20200608
  Transmission Date: 20200714
  Serious: Yes (Hospitalization)
  Sender: FDA-Public Use
  Company Number: GB-ALNYLAM PHARMACEUTICALS, INC.-ALN-2020-000852

PATIENT
  Age: 22 Year
  Sex: Female

DRUGS (1)
  1. ONPATTRO [Suspect]
     Active Substance: PATISIRAN SODIUM
     Indication: HEREDITARY NEUROPATHIC AMYLOIDOSIS
     Dosage: 15 MILLIGRAM, Q3W
     Route: 042

REACTIONS (4)
  - Palpitations [Unknown]
  - Partial seizures [Unknown]
  - Malaise [Unknown]
  - Visual impairment [Unknown]
